FAERS Safety Report 6688861-7 (Version None)
Quarter: 2010Q2

REPORT INFORMATION
  Report Type: 
  Country: None (occurrence: None)
  Receive Date: 20100420
  Receipt Date: 20100406
  Transmission Date: 20101027
  Serious: Yes (Hospitalization, Other)
  Sender: FDA-Public Use
  Company Number: US-ELI_LILLY_AND_COMPANY-US200912006201

PATIENT
  Sex: Female

DRUGS (19)
  1. FORTEO [Suspect]
     Indication: OSTEOPOROSIS
     Dosage: 20 UG, DAILY (1/D)
     Dates: end: 20091001
  2. FORTEO [Suspect]
     Dates: start: 20091001
  3. NEXIUM [Concomitant]
     Dosage: 40 MG, DAILY (1/D)
  4. PROPRANOLOL [Concomitant]
     Dosage: 20 MG, 2/D
  5. AMLODIPINE BESYLATE [Concomitant]
     Dosage: 2.5 MG, EACH MORNING
  6. AMLODIPINE BESYLATE [Concomitant]
     Dosage: 0.5 MG, EACH EVENING
  7. HYDROXYZINE PAMOATE [Concomitant]
     Dosage: 25 MG, EACH EVENING
  8. GABAPENTIN [Concomitant]
     Dosage: 300 MG, EACH EVENING
  9. ALPRAZOLAM [Concomitant]
     Dosage: 0.25 MG, DAILY (1/D)
  10. DETROL LA [Concomitant]
     Dosage: UNK, DAILY (1/D)
  11. TRAMADOL HCL [Concomitant]
     Dosage: 50 MG, EACH EVENING
  12. LORATADINE [Concomitant]
     Dosage: 10 MG, DAILY (1/D)
  13. LUNESTA [Concomitant]
     Indication: SLEEP DISORDER
     Dosage: 2 MG, EACH EVENING
  14. VITAMIN D [Concomitant]
     Dosage: UNK, 2/W
  15. ADVIL LIQUI-GELS [Concomitant]
  16. TYLENOL (CAPLET) [Concomitant]
     Dosage: UNK, AS NEEDED
  17. MYLANTA [Concomitant]
  18. TUMS [Concomitant]
     Dosage: UNK, AS NEEDED
  19. IMODIUM [Concomitant]
     Indication: DIARRHOEA
     Dosage: UNK, AS NEEDED

REACTIONS (16)
  - ABDOMINAL DISCOMFORT [None]
  - CEREBROVASCULAR ACCIDENT [None]
  - DIARRHOEA [None]
  - DYSPNOEA [None]
  - GASTROINTESTINAL HAEMORRHAGE [None]
  - HEART RATE INCREASED [None]
  - HEMIPARESIS [None]
  - INJECTION SITE HAEMATOMA [None]
  - INJECTION SITE HAEMORRHAGE [None]
  - INJECTION SITE PAIN [None]
  - JOINT SWELLING [None]
  - MALAISE [None]
  - NODULE ON EXTREMITY [None]
  - PULMONARY EMBOLISM [None]
  - PYREXIA [None]
  - VOMITING [None]
